FAERS Safety Report 13575420 (Version 1)
Quarter: 2017Q2

REPORT INFORMATION
  Report Type: Spontaneous
  Country: US (occurrence: US)
  Receive Date: 20170524
  Receipt Date: 20170524
  Transmission Date: 20170830
  Serious: No
  Sender: FDA-Public Use
  Company Number: US-ALEXION PHARMACEUTICALS INC.-A201705370

PATIENT
  Sex: Male

DRUGS (1)
  1. STRENSIQ [Suspect]
     Active Substance: ASFOTASE ALFA
     Indication: HYPOPHOSPHATASIA
     Route: 058

REACTIONS (9)
  - Withdrawal syndrome [Unknown]
  - Blood pressure increased [Unknown]
  - Nasal congestion [Unknown]
  - Feeling cold [Unknown]
  - Cold sweat [Unknown]
  - Spinal pain [Unknown]
  - Dyskinesia [Unknown]
  - Feeling abnormal [Unknown]
  - Nausea [Unknown]
